FAERS Safety Report 7096630-1 (Version None)
Quarter: 2010Q4

REPORT INFORMATION
  Report Type: 
  Country: None (occurrence: None)
  Receive Date: 20101025
  Receipt Date: 20101007
  Transmission Date: 20110411
  Serious: Yes (Life-Threatening, Hospitalization)
  Sender: FDA-Public Use
  Company Number: GAM-291-10-FR

PATIENT
  Age: 77 Year
  Sex: Male

DRUGS (13)
  1. OCTAGAM [Suspect]
     Indication: IMMUNODEFICIENCY COMMON VARIABLE
     Dosage: 30 G I.V.
     Route: 042
     Dates: start: 20100608, end: 20100608
  2. NATISPRAY (NITROGLYCERINE) [Concomitant]
  3. CORVASAL (MOLSIDOMINE) [Concomitant]
  4. PLAVIX [Concomitant]
  5. BI TILDIEM LP (DILTIAZEM) [Concomitant]
  6. CRESTOR [Concomitant]
  7. DAFLON (DIOSMIN AND HESPERIDIN) [Concomitant]
  8. MIFLONIL (BUDESONIDE) [Concomitant]
  9. PREDNISONE [Concomitant]
  10. FORADIL [Concomitant]
  11. HUMALOG [Concomitant]
  12. UMULINE (INSULIN) [Concomitant]
  13. PERINDOPRIL [Concomitant]

REACTIONS (2)
  - CAROTID ARTERY THROMBOSIS [None]
  - ISCHAEMIC STROKE [None]
